FAERS Safety Report 11374640 (Version 1)
Quarter: 2015Q3

REPORT INFORMATION
  Report Type: Spontaneous
  Country: US (occurrence: None)
  Receive Date: 20150812
  Receipt Date: 20150812
  Transmission Date: 20151125
  Serious: Yes (Other)
  Sender: FDA-Public Use
  Company Number: None

PATIENT
  Age: 15 Year
  Sex: Female
  Weight: 79.38 kg

DRUGS (2)
  1. TYLENOL [Concomitant]
     Active Substance: ACETAMINOPHEN
  2. TOBRAMYCIN .3% FALCON [Suspect]
     Active Substance: TOBRAMYCIN
     Indication: CONJUNCTIVITIS
     Dosage: INTO THE EYE, INSTILL 2 DROPS
     Dates: start: 20150804, end: 20150808

REACTIONS (2)
  - Drug hypersensitivity [None]
  - Eye haemorrhage [None]

NARRATIVE: CASE EVENT DATE: 20150808
